FAERS Safety Report 18661668 (Version 1)
Quarter: 2020Q4

REPORT INFORMATION
  Report Type: Spontaneous
  Country: DE (occurrence: DE)
  Receive Date: 20201224
  Receipt Date: 20201224
  Transmission Date: 20210114
  Serious: Yes (Other)
  Sender: FDA-Public Use
  Company Number: DE-PFIZER INC-2020504435

PATIENT
  Age: 35 Year
  Sex: Female
  Weight: 75 kg

DRUGS (3)
  1. CYTOTEC [Suspect]
     Active Substance: MISOPROSTOL
     Indication: LABOUR INDUCTION
     Dosage: UNK, 100-100-50-0 UG (3 DOSES)
     Route: 048
     Dates: start: 20161208, end: 20161208
  2. OXYTOCIN. [Concomitant]
     Active Substance: OXYTOCIN
     Dosage: UNK
  3. CYTOTEC [Suspect]
     Active Substance: MISOPROSTOL
     Indication: MACROSOMIA

REACTIONS (6)
  - Abnormal labour [Recovered/Resolved]
  - Arrested labour [Recovered/Resolved]
  - Off label use [Recovered/Resolved]
  - Vaginal haematoma [Recovered/Resolved]
  - Abdominal rigidity [Recovered/Resolved]
  - Vaginal haemorrhage [Recovered/Resolved]

NARRATIVE: CASE EVENT DATE: 20161208
